FAERS Safety Report 8411965-5 (Version None)
Quarter: 2012Q2

REPORT INFORMATION
  Report Type: 
  Country: None (occurrence: None)
  Receive Date: 20120605
  Receipt Date: 20120522
  Transmission Date: 20120825
  Serious: Yes (Death)
  Sender: FDA-Public Use
  Company Number: ES-CELGENEUS-144-21880-12052736

PATIENT
  Sex: Male

DRUGS (7)
  1. CEFEPIM [Concomitant]
     Indication: INFECTION
     Dosage: 400 MILLIGRAM
     Route: 048
     Dates: start: 20120508
  2. ASPIRIN [Concomitant]
     Indication: THROMBOSIS PROPHYLAXIS
     Dosage: 100 MILLIGRAM
     Route: 048
     Dates: start: 20120513
  3. DEXAMETHASONE [Suspect]
     Indication: MULTIPLE MYELOMA
     Route: 048
     Dates: start: 20120313, end: 20120409
  4. REVLIMID [Suspect]
     Indication: MULTIPLE MYELOMA
     Dosage: 25 MILLIGRAM
     Route: 048
     Dates: start: 20120313, end: 20120402
  5. REVLIMID [Suspect]
     Dosage: 25 MILLIGRAM
     Route: 048
     Dates: start: 20120410, end: 20120507
  6. SYMBICORT [Concomitant]
     Indication: INFECTION
     Dosage: PU FF
     Route: 048
     Dates: start: 20120508
  7. DEXAMETHASONE [Suspect]
     Route: 048
     Dates: start: 20120410, end: 20120507

REACTIONS (1)
  - DEATH [None]
